FAERS Safety Report 18925508 (Version 2)
Quarter: 2021Q3

REPORT INFORMATION
  Report Type: Other
  Country: IT (occurrence: IT)
  Receive Date: 20210223
  Receipt Date: 20210712
  Transmission Date: 20211014
  Serious: Yes (Other)
  Sender: FDA-Public Use
  Company Number: IT-ROCHE-2757974

PATIENT
  Age: 46 Year
  Sex: Female

DRUGS (3)
  1. DEXAMETHASONE. [Concomitant]
     Active Substance: DEXAMETHASONE
  2. PANTOPRAZOLE [Concomitant]
     Active Substance: PANTOPRAZOLE
  3. TRASTUZUMAB EMTANSINE [Suspect]
     Active Substance: ADO-TRASTUZUMAB EMTANSINE
     Indication: BREAST CANCER
     Dosage: THERAPY CYCLES 7 (KADCYLA) PERFORMED UNTIL 08?JULY?21?LAST TREATMENT DATE: 21/JAN/2021
     Route: 065
     Dates: start: 20200916

REACTIONS (4)
  - Ill-defined disorder [Recovered/Resolved]
  - Laryngeal oedema [Recovered/Resolved]
  - Breath sounds abnormal [Recovered/Resolved]
  - Throat tightness [Recovered/Resolved]

NARRATIVE: CASE EVENT DATE: 20210121
